FAERS Safety Report 19830413 (Version 1)
Quarter: 2021Q3

REPORT INFORMATION
  Report Type: Report from Study
  Country: US (occurrence: US)
  Receive Date: 20210915
  Receipt Date: 20210915
  Transmission Date: 20211014
  Serious: No
  Sender: FDA-Public Use
  Company Number: US-ACADIA PHARMACEUTICALS INC.-ACA-2021-PIM-003077

PATIENT
  Age: 81 Year
  Sex: Male

DRUGS (12)
  1. SINEMET [Concomitant]
     Active Substance: CARBIDOPA\LEVODOPA
  2. NUPLAZID [Suspect]
     Active Substance: PIMAVANSERIN TARTRATE
     Dosage: 34 MILLIGRAM, QD
     Route: 048
  3. NOURIANZ [Concomitant]
     Active Substance: ISTRADEFYLLINE
  4. FLUDROCORTISONE [Concomitant]
     Active Substance: FLUDROCORTISONE
  5. VITAMIN D3 [Concomitant]
     Active Substance: CHOLECALCIFEROL
  6. LUMIGAN [Concomitant]
     Active Substance: BIMATOPROST
  7. MIDODRINE [Concomitant]
     Active Substance: MIDODRINE
  8. ASPIRIN. [Concomitant]
     Active Substance: ASPIRIN
  9. NORTHERA [Concomitant]
     Active Substance: DROXIDOPA
  10. RASAGILINE. [Concomitant]
     Active Substance: RASAGILINE
  11. NUPLAZID [Suspect]
     Active Substance: PIMAVANSERIN TARTRATE
     Indication: PARKINSON^S DISEASE
     Dosage: 34 MILLIGRAM, QD
     Route: 048
     Dates: start: 20210225
  12. DONEPEZIL. [Concomitant]
     Active Substance: DONEPEZIL

REACTIONS (2)
  - Condition aggravated [Not Recovered/Not Resolved]
  - Product dose omission issue [Recovered/Resolved]

NARRATIVE: CASE EVENT DATE: 20210821
